FAERS Safety Report 7092641-0 (Version None)
Quarter: 2010Q4

REPORT INFORMATION
  Report Type: 
  Country: None (occurrence: None)
  Receive Date: 20101108
  Receipt Date: 20101108
  Transmission Date: 20110411
  Serious: Yes (Life-Threatening, Other)
  Sender: FDA-Public Use
  Company Number: None

PATIENT
  Age: 56 Year
  Sex: Male
  Weight: 74.3899 kg

DRUGS (4)
  1. OXYCONTIN [Suspect]
     Indication: HEADACHE
     Dosage: 60 MG 3 X'S DAILY
     Dates: start: 20091206, end: 20101105
  2. OXYCONTIN [Suspect]
     Indication: MUSCULOSKELETAL PAIN
     Dosage: 60 MG 3 X'S DAILY
     Dates: start: 20091206, end: 20101105
  3. OXYCONTIN [Suspect]
     Indication: NECK PAIN
     Dosage: 60 MG 3 X'S DAILY
     Dates: start: 20091206, end: 20101105
  4. OXYCONTIN [Suspect]
     Indication: TINNITUS
     Dosage: 60 MG 3 X'S DAILY
     Dates: start: 20091206, end: 20101105

REACTIONS (10)
  - ACTIVITIES OF DAILY LIVING IMPAIRED [None]
  - DISTURBANCE IN ATTENTION [None]
  - DIZZINESS [None]
  - DRUG INEFFECTIVE [None]
  - MEMORY IMPAIRMENT [None]
  - MUSCLE TIGHTNESS [None]
  - PAIN [None]
  - THINKING ABNORMAL [None]
  - TINNITUS [None]
  - WITHDRAWAL SYNDROME [None]
